FAERS Safety Report 10521759 (Version 1)
Quarter: 2014Q4

REPORT INFORMATION
  Report Type: Spontaneous
  Country: DE (occurrence: DE)
  Receive Date: 20141016
  Receipt Date: 20141016
  Transmission Date: 20150528
  Serious: Yes (Other)
  Sender: FDA-Public Use
  Company Number: PHHY2014DE134709

PATIENT
  Age: 71 Year
  Sex: Male

DRUGS (4)
  1. 5 FLUORO URACIL [Concomitant]
     Active Substance: FLUOROURACIL
     Indication: COLON CANCER
     Route: 065
  2. LEUCOVORIN [Concomitant]
     Active Substance: LEUCOVORIN
     Indication: COLON CANCER
     Route: 065
  3. OXALIPLATIN. [Suspect]
     Active Substance: OXALIPLATIN
     Indication: COLON CANCER
     Route: 065
  4. BEVACIZUMAB [Concomitant]
     Active Substance: BEVACIZUMAB
     Indication: COLON CANCER
     Route: 065

REACTIONS (10)
  - Haematuria [Unknown]
  - Toxicity to various agents [Unknown]
  - Acute kidney injury [Unknown]
  - Nephrotic syndrome [Unknown]
  - Nephritis [Unknown]
  - Hypersensitivity vasculitis [Unknown]
  - Focal segmental glomerulosclerosis [Unknown]
  - Haemorrhage [Unknown]
  - Petechiae [Unknown]
  - Chronic kidney disease [Unknown]
